FAERS Safety Report 9971383 (Version 1)
Quarter: 2014Q1

REPORT INFORMATION
  Report Type: Report from Study
  Country: US (occurrence: US)
  Receive Date: 20140306
  Receipt Date: 20140306
  Transmission Date: 20141002
  Serious: No
  Sender: FDA-Public Use
  Company Number: US-ABBVIE-13P-163-1151841-00

PATIENT
  Sex: Female

DRUGS (9)
  1. HUMIRA [Suspect]
     Indication: RHEUMATOID ARTHRITIS
  2. TRIAMTERENE [Concomitant]
     Indication: HYPERTENSION
     Dosage: 37.5 MG/25 MG DAILY
  3. METOPROLOL [Concomitant]
     Indication: HYPERTENSION
  4. CITALOPRAM [Concomitant]
     Indication: DEPRESSION
     Dosage: 40 MG DAILY
  5. CITALOPRAM [Concomitant]
     Indication: ANXIETY
  6. BUPROPION [Concomitant]
     Indication: INSOMNIA
  7. ALPRAZOLAM [Concomitant]
     Indication: INSOMNIA
     Dosage: OCCASIONALLY 1/2 OR 1 DURING THE DAY
  8. FOLIC ACID [Concomitant]
     Indication: IRON METABOLISM DISORDER
     Dosage: 1 MG DAILY
  9. LATANOPROST [Concomitant]
     Indication: PRODUCT USED FOR UNKNOWN INDICATION
     Dosage: 1 DROP TO BOTH EYES AT NIGHT

REACTIONS (5)
  - Joint dislocation [Not Recovered/Not Resolved]
  - Musculoskeletal pain [Not Recovered/Not Resolved]
  - Fall [Not Recovered/Not Resolved]
  - Ligament rupture [Not Recovered/Not Resolved]
  - Stress [Not Recovered/Not Resolved]
